FAERS Safety Report 9646656 (Version 1)
Quarter: 2013Q4

REPORT INFORMATION
  Report Type: Spontaneous
  Country: US (occurrence: US)
  Receive Date: 20131026
  Receipt Date: 20131026
  Transmission Date: 20140711
  Serious: No
  Sender: FDA-Public Use
  Company Number: US-009507513-1310USA010312

PATIENT
  Sex: Female

DRUGS (21)
  1. ASMANEX TWISTHALER [Suspect]
     Indication: ASTHMA
     Dosage: 1 DF, QD
     Route: 055
     Dates: start: 200310
  2. SYNTHROID [Concomitant]
  3. ALDACTONE TABLETS [Concomitant]
  4. MYRBETRIQ [Concomitant]
  5. NASONEX [Concomitant]
  6. PRAZOSIN [Concomitant]
  7. TEGRETOL [Concomitant]
     Route: 048
  8. EFFEXOR XR [Concomitant]
  9. VIVELLE-DOT [Concomitant]
  10. BUSPAR [Concomitant]
  11. LAMICTAL [Concomitant]
  12. TRAZODONE HYDROCHLORIDE [Concomitant]
  13. SINGULAIR [Concomitant]
     Route: 048
  14. FOCALIN [Concomitant]
  15. ST JOSEPH ASPIRIN [Concomitant]
  16. CHOLECALCIFEROL [Concomitant]
  17. VITAMINS (UNSPECIFIED) [Concomitant]
  18. XOPENEX HFA [Concomitant]
  19. EPIPEN [Concomitant]
  20. KLONOPIN [Concomitant]
  21. XOPENEX [Suspect]

REACTIONS (3)
  - Chest discomfort [Not Recovered/Not Resolved]
  - Upper-airway cough syndrome [Not Recovered/Not Resolved]
  - Drug dose omission [Unknown]
